FAERS Safety Report 25207845 (Version 1)
Quarter: 2025Q2

REPORT INFORMATION
  Report Type: Spontaneous
  Country: IL (occurrence: IL)
  Receive Date: 20250417
  Receipt Date: 20250417
  Transmission Date: 20250716
  Serious: Yes (Life-Threatening)
  Sender: PFIZER
  Company Number: IL-TAKEDA-2025TUS035260

PATIENT

DRUGS (1)
  1. CONTROLOC [Suspect]
     Active Substance: PANTOPRAZOLE SODIUM
     Route: 042

REACTIONS (3)
  - Pruritus [Unknown]
  - Cough [Unknown]
  - Dyspnoea [Unknown]
